FAERS Safety Report 24175257 (Version 1)
Quarter: 2024Q3

REPORT INFORMATION
  Report Type: Spontaneous
  Country: US (occurrence: US)
  Receive Date: 20240805
  Receipt Date: 20240805
  Transmission Date: 20241017
  Serious: No
  Sender: PAREXEL
  Company Number: US-SCPHARMACEUTICALS-2024-SCPH-US000402

PATIENT

DRUGS (1)
  1. FUROSCIX [Suspect]
     Active Substance: FUROSEMIDE
     Indication: Cardiac failure congestive
     Dosage: 80 MG, PRN
     Route: 058
     Dates: start: 202406

REACTIONS (3)
  - Contusion [Recovering/Resolving]
  - Fall [Unknown]
  - Rash macular [Unknown]

NARRATIVE: CASE EVENT DATE: 20240612
